FAERS Safety Report 4963380-4 (Version None)
Quarter: 2006Q1

REPORT INFORMATION
  Report Type: 
  Country: None (occurrence: None)
  Receive Date: 20060329
  Receipt Date: 20060314
  Transmission Date: 20060701
  Serious: Yes (Death, Hospitalization)
  Sender: FDA-Public Use
  Company Number: COT_0466_2006

PATIENT
  Age: 78 Year
  Sex: Male
  Weight: 78.9259 kg

DRUGS (19)
  1. VENTAVIS [Suspect]
     Indication: PULMONARY HYPERTENSION
     Dosage: 2.5 MCG 6TO9X/DAY IH
     Route: 055
     Dates: start: 20060306
  2. OXYGEN [Concomitant]
  3. FOSAMAX [Concomitant]
  4. PULMICORT [Concomitant]
  5. ALBUTEROL [Concomitant]
  6. SALSALATE [Concomitant]
  7. LORATADINE [Concomitant]
  8. DUONEB [Concomitant]
  9. PREDNISONE TAB [Concomitant]
  10. MIRALAX [Concomitant]
  11. PRILOSEC [Concomitant]
  12. AEROBID [Concomitant]
  13. SINGULAIR [Concomitant]
  14. XANAX [Concomitant]
  15. FORADIL [Concomitant]
  16. REGLAN [Concomitant]
  17. COLACE [Concomitant]
  18. ZOCOR [Concomitant]
  19. CALCIUM GLUCONATE [Concomitant]

REACTIONS (3)
  - CARDIAC ARREST [None]
  - TENDON RUPTURE [None]
  - THROMBOSIS [None]
